FAERS Safety Report 7603817-5 (Version None)
Quarter: 2011Q3

REPORT INFORMATION
  Report Type: 
  Country: None (occurrence: None)
  Receive Date: 20110712
  Receipt Date: 20110707
  Transmission Date: 20111222
  Serious: Yes (Other)
  Sender: FDA-Public Use
  Company Number: FR-VIIV HEALTHCARE LIMITED-B0717445A

PATIENT
  Sex: Male
  Weight: 69 kg

DRUGS (10)
  1. PREZISTA [Concomitant]
     Indication: HIV INFECTION
     Dosage: 600MG TWICE PER DAY
     Route: 048
     Dates: start: 20080310, end: 20081217
  2. ACTOS [Concomitant]
     Indication: INSULIN RESISTANCE
     Dosage: 30MG PER DAY
     Route: 048
     Dates: start: 20070330
  3. CELSENTRI [Suspect]
     Indication: HIV INFECTION
     Dosage: 150MG TWICE PER DAY
     Route: 048
     Dates: start: 20081124, end: 20081217
  4. NORVIR [Concomitant]
     Indication: HIV INFECTION
     Dosage: 100MG TWICE PER DAY
     Route: 048
     Dates: start: 20080310, end: 20081217
  5. FRACTAL [Concomitant]
     Indication: DYSLIPIDAEMIA
     Dosage: 80MG PER DAY
     Route: 048
     Dates: start: 20070330
  6. NAPROXEN [Suspect]
     Indication: PAIN IN EXTREMITY
     Dosage: 550MG TWICE PER DAY
     Route: 048
     Dates: start: 20081209, end: 20081217
  7. ZITHROMAX [Suspect]
     Indication: BRONCHITIS
     Dosage: 2UNIT PER DAY
     Route: 048
     Dates: start: 20081209, end: 20081211
  8. RANITIDINE [Concomitant]
     Indication: ABDOMINAL PAIN UPPER
     Dosage: 300MG PER DAY
     Route: 048
     Dates: start: 20080310
  9. ISENTRESS [Concomitant]
     Indication: HIV INFECTION
     Dosage: 400MG TWICE PER DAY
     Route: 048
     Dates: start: 20081124, end: 20081217
  10. ALENDRONATE SODIUM [Concomitant]
     Indication: OSTEOPOROSIS
     Dosage: 70MG WEEKLY
     Route: 048
     Dates: start: 20040224

REACTIONS (6)
  - HEPATOCELLULAR INJURY [None]
  - NAUSEA [None]
  - DECREASED APPETITE [None]
  - ABDOMINAL PAIN UPPER [None]
  - PRURITUS [None]
  - OCULAR ICTERUS [None]
